FAERS Safety Report 24593540 (Version 1)
Quarter: 2024Q4

REPORT INFORMATION
  Report Type: Report from Study
  Country: US (occurrence: US)
  Receive Date: 20241108
  Receipt Date: 20241108
  Transmission Date: 20250114
  Serious: Yes (Other)
  Sender: ARGENX BVBA
  Company Number: US-ARGENX-2024-ARGX-US006017

PATIENT

DRUGS (1)
  1. VYVGART HYTRULO [Suspect]
     Active Substance: EFGARTIGIMOD ALFA\HYALURONIDASE-QVFC
     Indication: Chronic inflammatory demyelinating polyradiculoneuropathy
     Dosage: UNK
     Route: 058
     Dates: end: 20240801

REACTIONS (19)
  - Immunodeficiency [Unknown]
  - Polymyalgia rheumatica [Unknown]
  - Benign prostatic hyperplasia [Unknown]
  - Dysuria [Unknown]
  - Back pain [Unknown]
  - Musculoskeletal pain [Unknown]
  - Cough [Unknown]
  - Night sweats [Unknown]
  - Therapy interrupted [Unknown]
  - Hyperhidrosis [Recovered/Resolved]
  - Lymphocyte count decreased [Unknown]
  - Injection site bruising [Unknown]
  - Injection site rash [Recovered/Resolved]
  - Injection site rash [Recovered/Resolved]
  - Injection site erythema [Unknown]
  - Injection site pruritus [Unknown]
  - Injection site erythema [Unknown]
  - Injection site pruritus [Unknown]
  - Nasopharyngitis [Unknown]

NARRATIVE: CASE EVENT DATE: 20240901
